FAERS Safety Report 9132228 (Version 1)
Quarter: 2013Q1

REPORT INFORMATION
  Report Type: Spontaneous
  Country: US (occurrence: US)
  Receive Date: 20130107
  Receipt Date: 20130107
  Transmission Date: 20140127
  Serious: No
  Sender: FDA-Public Use
  Company Number: US-BAUSCH-BL-2012-001605

PATIENT
  Age: 66 Year
  Sex: Female

DRUGS (1)
  1. ZIRGAN [Suspect]
     Indication: HERPES OPHTHALMIC
     Dosage: 1 DROP; TWICE A DAY; LEFT EYE
     Route: 047
     Dates: start: 20121031, end: 20121031

REACTIONS (3)
  - Vision blurred [Recovering/Resolving]
  - Ocular hyperaemia [Recovering/Resolving]
  - Eye irritation [Recovering/Resolving]
